FAERS Safety Report 6011708-9 (Version None)
Quarter: 2008Q4

REPORT INFORMATION
  Report Type: 
  Country: None (occurrence: None)
  Receive Date: 20081218
  Receipt Date: 19940706
  Transmission Date: 20090506
  Serious: Yes (Death, Other)
  Sender: FDA-Public Use
  Company Number: US-ROCHE-940201386001

PATIENT
  Sex: Male
  Weight: 83.9 kg

DRUGS (13)
  1. CLONAZEPAM [Suspect]
     Route: 048
     Dates: start: 19920909, end: 19930419
  2. CLOZARIL [Suspect]
     Indication: SCHIZOPHRENIA
     Route: 048
     Dates: start: 19920930, end: 19921026
  3. CLOZARIL [Suspect]
     Route: 048
     Dates: start: 19921027, end: 19930111
  4. CLOZARIL [Suspect]
     Route: 048
     Dates: start: 19930112, end: 19930116
  5. CLOZARIL [Suspect]
     Route: 048
     Dates: start: 19930117
  6. COGENTIN [Concomitant]
     Route: 065
     Dates: start: 19920821, end: 19921117
  7. LOXITANE [Concomitant]
     Route: 065
     Dates: start: 19920821, end: 19921016
  8. LOTRIMIN [Concomitant]
     Route: 065
     Dates: start: 19920905, end: 19920913
  9. OXY 10 [Concomitant]
     Route: 065
     Dates: start: 19920905, end: 19921010
  10. MILK OF MAGNESIA [Concomitant]
     Route: 065
     Dates: start: 19920821, end: 19930419
  11. TYLENOL (CAPLET) [Concomitant]
     Route: 065
     Dates: start: 19920821, end: 19930419
  12. ATIVAN [Concomitant]
     Route: 065
     Dates: start: 19920821, end: 19930419
  13. ALCOHOL [Concomitant]
     Route: 048

REACTIONS (2)
  - ACUTE PULMONARY OEDEMA [None]
  - DRUG TOXICITY [None]
